FAERS Safety Report 14766896 (Version 1)
Quarter: 2018Q2

REPORT INFORMATION
  Report Type: Report from Study
  Country: CO (occurrence: CO)
  Receive Date: 20180417
  Receipt Date: 20180417
  Transmission Date: 20180711
  Serious: Yes (Other)
  Sender: FDA-Public Use
  Company Number: CO-ROCHE-2107157

PATIENT
  Age: 40 Year
  Sex: Female
  Weight: 69 kg

DRUGS (1)
  1. XOLAIR [Suspect]
     Active Substance: OMALIZUMAB
     Indication: CHRONIC SPONTANEOUS URTICARIA
     Route: 058

REACTIONS (9)
  - Skin odour abnormal [Unknown]
  - Malaise [Unknown]
  - Menorrhagia [Unknown]
  - Pain [Unknown]
  - Menstruation irregular [Unknown]
  - Uterine polyp [Unknown]
  - Urticaria [Unknown]
  - Haemorrhage urinary tract [Unknown]
  - Dysuria [Unknown]

NARRATIVE: CASE EVENT DATE: 20180404
